FAERS Safety Report 5058278-X (Version None)
Quarter: 2006Q2

REPORT INFORMATION
  Report Type: 
  Country: None (occurrence: None)
  Receive Date: 20060627
  Receipt Date: 20051114
  Transmission Date: 20061013
  Serious: Yes (Hospitalization)
  Sender: FDA-Public Use
  Company Number: 425077

PATIENT
  Age: 80 Year
  Sex: Female

DRUGS (11)
  1. XELODA [Suspect]
     Indication: NEOPLASM MALIGNANT
     Dosage: ORAL
     Route: 048
     Dates: start: 20050115
  2. COUMADIN [Concomitant]
  3. ZOMETA [Concomitant]
  4. ARANESP [Concomitant]
  5. TAXOTERE [Concomitant]
  6. MEGACE [Concomitant]
  7. FASLODEX [Concomitant]
  8. PREDNISONE TAB [Concomitant]
  9. DITROPAN [Concomitant]
  10. XANAX [Concomitant]
  11. LASIX [Concomitant]

REACTIONS (19)
  - ANAEMIA [None]
  - ASPARTATE AMINOTRANSFERASE INCREASED [None]
  - BLOOD ALKALINE PHOSPHATASE INCREASED [None]
  - BLOOD BILIRUBIN INCREASED [None]
  - BLOOD LACTATE DEHYDROGENASE INCREASED [None]
  - BLOOD POTASSIUM DECREASED [None]
  - BLOOD UREA INCREASED [None]
  - CONFUSIONAL STATE [None]
  - CULTURE URINE POSITIVE [None]
  - DEHYDRATION [None]
  - DIARRHOEA [None]
  - DISEASE PROGRESSION [None]
  - DIZZINESS [None]
  - HYDRONEPHROSIS [None]
  - INTERNATIONAL NORMALISED RATIO INCREASED [None]
  - OEDEMA PERIPHERAL [None]
  - PLATELET COUNT DECREASED [None]
  - WEIGHT DECREASED [None]
  - WHITE BLOOD CELL COUNT DECREASED [None]
